FAERS Safety Report 7534794-3 (Version None)
Quarter: 2011Q2

REPORT INFORMATION
  Report Type: 
  Country: None (occurrence: None)
  Receive Date: 20110609
  Receipt Date: 20080826
  Transmission Date: 20111010
  Serious: Yes (Other)
  Sender: FDA-Public Use
  Company Number: PHHY2008US19393

PATIENT
  Sex: Female

DRUGS (13)
  1. REGLAN [Concomitant]
     Dosage: 5 MG, TID
     Route: 048
  2. VITAMINS NOS [Concomitant]
     Dosage: 1 TAB QD
  3. CLOZAPINE [Suspect]
     Indication: SCHIZOPHRENIA
     Dosage: 400 MG, QHS
     Route: 048
  4. GEODON [Concomitant]
     Dosage: 100 MG, BID
  5. ZETIA [Concomitant]
     Dosage: 10 MG, QHS
  6. CARAFATE [Concomitant]
     Dosage: 1 GM BID PRN
     Route: 048
  7. PREVACID [Concomitant]
     Dosage: 30 MG, BID
  8. ASPIRIN [Concomitant]
     Dosage: 325 MG, QD
     Route: 048
  9. RENAGEL [Concomitant]
     Dosage: 400 MG, 4 CAPS WITH MEALS
  10. MIRALAX [Concomitant]
     Dosage: 17 G, QHS
  11. COLACE [Concomitant]
     Dosage: 200 MG, BID
     Route: 048
  12. K-DUR [Concomitant]
     Dosage: 30 MEQ, QHS
  13. DITROPAN XL [Concomitant]
     Dosage: 10 MG, QHS
     Route: 048

REACTIONS (1)
  - RENAL FAILURE [None]
